FAERS Safety Report 15607350 (Version 1)
Quarter: 2018Q4

REPORT INFORMATION
  Report Type: Spontaneous
  Country: ZA (occurrence: ZA)
  Receive Date: 20181112
  Receipt Date: 20181112
  Transmission Date: 20190205
  Serious: Yes (Death)
  Sender: FDA-Public Use
  Company Number: ZA-PFIZER INC-2018462566

PATIENT
  Age: 59 Year
  Sex: Female

DRUGS (11)
  1. RAVAMIL (VERAPAMIL HYDROCHLORIDE) [Suspect]
     Active Substance: VERAPAMIL HYDROCHLORIDE
     Dosage: 240 MG, UNK
  2. TRAMAL [Suspect]
     Active Substance: TRAMADOL
     Dosage: 100 MG, UNK
  3. NORVASC [Suspect]
     Active Substance: AMLODIPINE BESYLATE
     Dosage: 5 MG, UNK
  4. CALCIFEROL [COLECALCIFEROL] [Suspect]
     Active Substance: CHOLECALCIFEROL
     Dosage: 50000 IU, UNK
  5. ALDACTONE [Suspect]
     Active Substance: SPIRONOLACTONE
     Dosage: 25 MG, UNK
  6. NORSTAN-ISONIAZID [Suspect]
     Active Substance: ISONIAZID
     Dosage: 200 MG, UNK
  7. NORVASC [Suspect]
     Active Substance: AMLODIPINE BESYLATE
     Dosage: 10 MG, UNK
  8. PANTOCID [PANTOPRAZOLE SODIUM SESQUIHYDRATE] [Suspect]
     Active Substance: PANTOPRAZOLE SODIUM
     Dosage: 20 MG, UNK
  9. GLUCOPHAGE [Suspect]
     Active Substance: METFORMIN HYDROCHLORIDE
     Dosage: 500 MG, UNK
  10. BE-TABS PREDNISOLONE [Suspect]
     Active Substance: PREDNISOLONE
     Dosage: 5 MG, UNK
  11. MYLAN FUROSEMIDE [Suspect]
     Active Substance: FUROSEMIDE
     Dosage: 40 MG, UNK

REACTIONS (1)
  - Death [Fatal]
